FAERS Safety Report 8742475 (Version 2)
Quarter: 2012Q4

REPORT INFORMATION
  Report Type: Report from Study
  Country: CN (occurrence: CN)
  Receive Date: 20120824
  Receipt Date: 20120912
  Transmission Date: 20130627
  Serious: Yes (Life-Threatening, Hospitalization)
  Sender: FDA-Public Use
  Company Number: CN-BRISTOL-MYERS SQUIBB COMPANY-16857302

PATIENT
  Age: 45 Year
  Sex: Male
  Weight: 64 kg

DRUGS (4)
  1. CETUXIMAB [Suspect]
     Indication: COLORECTAL CANCER METASTATIC
     Dosage: Int:31Jul12:550D
16Aug-30Aug12:14D
restarted on30Aug12
     Route: 042
     Dates: start: 20110127
  2. FOLINIC ACID [Suspect]
     Indication: COLORECTAL CANCER METASTATIC
     Dosage: Int:31Jul12
     Route: 042
     Dates: start: 20110127, end: 20120830
  3. 5-FLUOROURACIL [Suspect]
     Indication: COLORECTAL CANCER METASTATIC
     Dosage: Bolous:704mg
inf:2112mg
Int:31Jul12
     Route: 040
     Dates: start: 20110127, end: 20120830
  4. OXALIPLATIN [Suspect]
     Indication: COLORECTAL CANCER METASTATIC
     Dosage: Int:31Jul12
     Route: 042
     Dates: start: 20110127, end: 20120830

REACTIONS (1)
  - Venous thrombosis limb [Recovered/Resolved]
